FAERS Safety Report 9735395 (Version 1)
Quarter: 2013Q4

REPORT INFORMATION
  Report Type: Spontaneous
  Country: GB (occurrence: GB)
  Receive Date: 20131206
  Receipt Date: 20131206
  Transmission Date: 20140711
  Serious: Yes (Other)
  Sender: FDA-Public Use
  Company Number: GB-ACTAVIS-2013-22308

PATIENT
  Sex: Male

DRUGS (4)
  1. SPIRONOLACTONE (UNKNOWN) [Suspect]
     Indication: PRODUCT USED FOR UNKNOWN INDICATION
     Dosage: 25 MG, DAILY
     Route: 048
     Dates: start: 20130501, end: 20131020
  2. ADIZEM-XL [Concomitant]
     Indication: PRODUCT USED FOR UNKNOWN INDICATION
     Dosage: 300 MG, DAILY, NAPP PHARMACEUTICALS LTD
     Route: 048
  3. RAMIPRIL [Concomitant]
     Indication: PRODUCT USED FOR UNKNOWN INDICATION
     Dosage: 10 MG, DAILY
     Route: 048
  4. BENDROFLUMETHIAZIDE [Concomitant]
     Indication: PRODUCT USED FOR UNKNOWN INDICATION
     Dosage: 2.5 MG, DAILY
     Route: 048

REACTIONS (2)
  - Gynaecomastia [Unknown]
  - Nipple disorder [Unknown]
